FAERS Safety Report 8065862-8 (Version None)
Quarter: 2012Q1

REPORT INFORMATION
  Report Type: 
  Country: None (occurrence: None)
  Receive Date: 20120124
  Receipt Date: 20120117
  Transmission Date: 20120608
  Serious: Yes (Death, Hospitalization)
  Sender: FDA-Public Use
  Company Number: CZ-SANOFI-AVENTIS-2012SA000929

PATIENT
  Age: 71 Year
  Sex: Female
  Weight: 95 kg

DRUGS (7)
  1. FORTECORTIN [Concomitant]
  2. BLINDED THERAPY [Suspect]
     Route: 042
     Dates: start: 20111013, end: 20111013
  3. LETROX [Concomitant]
  4. DOCETAXEL [Suspect]
     Route: 041
     Dates: start: 20111013, end: 20111013
  5. DIAPREL [Concomitant]
  6. DOCETAXEL [Suspect]
     Route: 041
     Dates: start: 20111124, end: 20111124
  7. BLINDED THERAPY [Suspect]
     Route: 042
     Dates: start: 20111124, end: 20111124

REACTIONS (8)
  - TACHYPNOEA [None]
  - TACHYCARDIA [None]
  - NEUTROPENIA [None]
  - CARDIOPULMONARY FAILURE [None]
  - HYPERGLYCAEMIA [None]
  - DYSPNOEA [None]
  - PULMONARY EMBOLISM [None]
  - TYPE 2 DIABETES MELLITUS [None]
